FAERS Safety Report 18847311 (Version 1)
Quarter: 2021Q1

REPORT INFORMATION
  Report Type: Report from Study
  Country: US (occurrence: US)
  Receive Date: 20210204
  Receipt Date: 20210204
  Transmission Date: 20210419
  Serious: Yes (Other)
  Sender: FDA-Public Use
  Company Number: US-TAKEDA-2020TUS049061

PATIENT
  Sex: Female

DRUGS (2)
  1. VEDOLIZUMAB [Suspect]
     Active Substance: VEDOLIZUMAB
     Indication: CROHN^S DISEASE
     Dosage: 300 MILLIGRAM
     Route: 042
     Dates: start: 2020
  2. PRIMIDONE. [Concomitant]
     Active Substance: PRIMIDONE
     Indication: FAMILIAL TREMOR
     Dosage: 50 MILLIGRAM

REACTIONS (6)
  - Lip and/or oral cavity cancer [Unknown]
  - Procedural pain [Unknown]
  - Stress [Unknown]
  - Nasal ulcer [Unknown]
  - Alopecia [Unknown]
  - Reading disorder [Unknown]

NARRATIVE: CASE EVENT DATE: 2020
